FAERS Safety Report 20171366 (Version 1)
Quarter: 2021Q4

REPORT INFORMATION
  Report Type: Spontaneous
  Country: CA (occurrence: CA)
  Receive Date: 20211210
  Receipt Date: 20211210
  Transmission Date: 20220304
  Serious: Yes (Life-Threatening)
  Sender: FDA-Public Use
  Company Number: CA-TEVA-2021-CA-1985476

PATIENT
  Sex: Female

DRUGS (2)
  1. PREDNISONE [Suspect]
     Active Substance: PREDNISONE
     Route: 065
  2. PIPERACILLIN SODIUM\TAZOBACTAM SODIUM [Suspect]
     Active Substance: PIPERACILLIN SODIUM\TAZOBACTAM SODIUM
     Route: 065

REACTIONS (3)
  - Cardiac failure congestive [Unknown]
  - Colitis [Unknown]
  - Drug hypersensitivity [Unknown]
